FAERS Safety Report 19723026 (Version 1)
Quarter: 2021Q3

REPORT INFORMATION
  Report Type: Spontaneous
  Country: DE (occurrence: DE)
  Receive Date: 20210819
  Receipt Date: 20210819
  Transmission Date: 20211014
  Serious: Yes (Hospitalization, Other)
  Sender: FDA-Public Use
  Company Number: DE-TEVA-2021-DE-1941918

PATIENT
  Age: 68 Year
  Sex: Male

DRUGS (9)
  1. TAMSULOSIN [Concomitant]
     Active Substance: TAMSULOSIN
     Dosage: .4 MILLIGRAM DAILY; 0?0?1?0
  2. GEMCITABINE. [Suspect]
     Active Substance: GEMCITABINE
     Dosage: ACCORDING TO THE SCHEME
  3. CALCIUMCARBONAT/COLECALCIFEROL (VITAMIN D)/SACCHAROMYCES CEREVISIAE [Concomitant]
     Dosage: 1 DOSAGE FORMS DAILY; 1?0?0?0
  4. AMLODIPIN [Concomitant]
     Active Substance: AMLODIPINE BESYLATE
     Dosage: 10 MILLIGRAM DAILY; 1?0?1?0
  5. PREGABALIN. [Concomitant]
     Active Substance: PREGABALIN
     Dosage: 150 MILLIGRAM DAILY; 1?0?1?0
  6. CISPLATIN. [Suspect]
     Active Substance: CISPLATIN
     Dosage: ACCORDING TO THE SCHEME
  7. RAMIPRIL. [Concomitant]
     Active Substance: RAMIPRIL
     Dosage: 5 MILLIGRAM DAILY; 1?0?0?0
  8. APIXABAN [Concomitant]
     Active Substance: APIXABAN
     Dosage: 10 MILLIGRAM DAILY; 1?0?1?0
  9. PANTOPRAZOL [Concomitant]
     Active Substance: PANTOPRAZOLE SODIUM
     Dosage: 20 MILLIGRAM DAILY; 1?0?0?0

REACTIONS (5)
  - Pollakiuria [Unknown]
  - Urogenital haemorrhage [Unknown]
  - General physical health deterioration [Unknown]
  - Pyrexia [Unknown]
  - Chills [Unknown]
